FAERS Safety Report 8547991 (Version 3)
Quarter: 2013Q1

REPORT INFORMATION
  Report Type: Spontaneous
  Country: JP (occurrence: JP)
  Receive Date: 20120504
  Receipt Date: 20130131
  Transmission Date: 20140127
  Serious: Yes (Life-Threatening, Hospitalization)
  Sender: FDA-Public Use
  Company Number: JP-ROCHE-1063471

PATIENT
  Age: 61 None
  Sex: Female

DRUGS (3)
  1. ACTEMRA [Suspect]
     Indication: RHEUMATOID ARTHRITIS
     Dosage: DOSAGE IS UNCERTAIN.
     Route: 041
     Dates: start: 2009, end: 2011
  2. PREDNISOLONE [Concomitant]
     Indication: RHEUMATOID ARTHRITIS
     Dosage: DOSAGE IS UNCERTAIN.
     Route: 048
     Dates: start: 1990, end: 2009
  3. METHOTREXATE [Concomitant]
     Indication: RHEUMATOID ARTHRITIS
     Route: 048
     Dates: start: 2007, end: 2009

REACTIONS (7)
  - Cellulitis [Recovered/Resolved]
  - Septic shock [Recovered/Resolved]
  - Obstructive airways disorder [Recovered/Resolved]
  - Oropharyngeal swelling [Recovered/Resolved]
  - Oropharyngeal swelling [Recovered/Resolved]
  - Abscess [Recovered/Resolved]
  - Laryngeal oedema [Recovered/Resolved]
